FAERS Safety Report 4862104-9 (Version None)
Quarter: 2005Q4

REPORT INFORMATION
  Report Type: 
  Country: None (occurrence: None)
  Receive Date: 20051130
  Receipt Date: 20001002
  Transmission Date: 20060501
  Serious: Yes (Hospitalization, Other)
  Sender: FDA-Public Use
  Company Number: PHEH2000US08670

PATIENT
  Age: 33 Year
  Sex: Female

DRUGS (8)
  1. LAMISIL [Suspect]
     Indication: NAIL TINEA
     Dosage: 500 MG, QD, ORAL
     Route: 048
     Dates: start: 20000718, end: 20000804
  2. TTANUS ANTITOXIN, HUMAN(IMMUNOGLOBULIN HUMAN ANTI-TETANUS) [Suspect]
  3. ZANTAC [Concomitant]
  4. XANAX [Concomitant]
  5. DIOVAN [Concomitant]
  6. ZYRTEC [Concomitant]
  7. FLONASE [Concomitant]
  8. LASIX [Concomitant]

REACTIONS (7)
  - ANAPHYLACTIC REACTION [None]
  - FACE OEDEMA [None]
  - FEELING HOT [None]
  - OEDEMA PERIPHERAL [None]
  - RASH [None]
  - STRIDOR [None]
  - URTICARIA [None]
